FAERS Safety Report 5129678-4 (Version None)
Quarter: 2006Q4

REPORT INFORMATION
  Report Type: 
  Country: None (occurrence: None)
  Receive Date: 20061018
  Receipt Date: 20051201
  Transmission Date: 20070319
  Serious: Yes (Other)
  Sender: FDA-Public Use
  Company Number: GB-GLAXOSMITHKLINE-B0402428A

PATIENT
  Age: 43 Year
  Sex: Female
  Weight: 60 kg

DRUGS (2)
  1. LAMICTAL [Suspect]
     Indication: BIPOLAR DISORDER
     Dosage: 100MG PER DAY
     Route: 048
     Dates: start: 20051011
  2. CITALOPRAM [Concomitant]
     Indication: DEPRESSION
     Dosage: 40MG PER DAY
     Route: 048
     Dates: start: 20040101

REACTIONS (6)
  - ABNORMAL DREAMS [None]
  - HALLUCINATION, VISUAL [None]
  - HEADACHE [None]
  - HYPERACUSIS [None]
  - NIGHTMARE [None]
  - SLEEP DISORDER [None]
